FAERS Safety Report 22047313 (Version 1)
Quarter: 2023Q1

REPORT INFORMATION
  Report Type: Spontaneous
  Country: US (occurrence: US)
  Receive Date: 20230301
  Receipt Date: 20230301
  Transmission Date: 20230418
  Serious: No
  Sender: FDA-Public Use
  Company Number: US-SANOFI-01507223

PATIENT
  Age: 77 Year
  Sex: Male

DRUGS (2)
  1. SOLIQUA 100/33 [Suspect]
     Active Substance: INSULIN GLARGINE\LIXISENATIDE
     Indication: Type 2 diabetes mellitus
     Dosage: 56 U, BID
  2. NOVOLIN 70/30 [Concomitant]
     Active Substance: INSULIN HUMAN

REACTIONS (1)
  - Inappropriate schedule of product administration [Unknown]
